FAERS Safety Report 8437595-7 (Version None)
Quarter: 2012Q2

REPORT INFORMATION
  Report Type: 
  Country: None (occurrence: None)
  Receive Date: 20120614
  Receipt Date: 20120410
  Transmission Date: 20120825
  Serious: No
  Sender: FDA-Public Use
  Company Number: US-AMGEN-USASP2012022524

PATIENT

DRUGS (3)
  1. CALCIUM [Concomitant]
     Dosage: 500 MG, UNK
  2. XGEVA [Suspect]
     Indication: PRODUCT USED FOR UNKNOWN INDICATION
     Dosage: UNK
  3. VITAMIN D [Concomitant]
     Dosage: 400 IU, UNK

REACTIONS (1)
  - HYPOCALCAEMIA [None]
